FAERS Safety Report 5411796-4 (Version None)
Quarter: 2007Q3

REPORT INFORMATION
  Report Type: 
  Country: None (occurrence: None)
  Receive Date: 20070813
  Receipt Date: 20070806
  Transmission Date: 20080115
  Serious: Yes (Other)
  Sender: FDA-Public Use
  Company Number: PHFR2007GB02357

PATIENT
  Sex: Male

DRUGS (1)
  1. LESCOL [Suspect]
     Indication: DIABETES MELLITUS
     Dosage: 40 MG/DAY
     Route: 065

REACTIONS (3)
  - NEUROPATHIC ULCER [None]
  - NEUROPATHY [None]
  - PARAESTHESIA [None]
